FAERS Safety Report 17860950 (Version 1)
Quarter: 2020Q2

REPORT INFORMATION
  Report Type: Spontaneous
  Country: US (occurrence: US)
  Receive Date: 20200604
  Receipt Date: 20200604
  Transmission Date: 20200714
  Serious: No
  Sender: FDA-Public Use
  Company Number: US-INCYTE CORPORATION-2020IN004953

PATIENT

DRUGS (1)
  1. JAKAFI [Suspect]
     Active Substance: RUXOLITINIB
     Indication: DEFICIENCY ANAEMIA
     Dosage: 5 MILLIGRAM, BID
     Route: 048
     Dates: start: 20200212

REACTIONS (3)
  - Off label use [Unknown]
  - Diarrhoea [Unknown]
  - Fatigue [Unknown]
